FAERS Safety Report 24072089 (Version 1)
Quarter: 2024Q3

REPORT INFORMATION
  Report Type: Spontaneous
  Country: JP (occurrence: JP)
  Receive Date: 20240710
  Receipt Date: 20240710
  Transmission Date: 20241017
  Serious: Yes (Hospitalization, Other)
  Sender: TAKEDA
  Company Number: JP-TAKEDA-2024TUS068923

PATIENT
  Age: 62 Year
  Sex: Male

DRUGS (1)
  1. LIALDA [Suspect]
     Active Substance: MESALAMINE
     Indication: Colitis ulcerative
     Dosage: 4800 MILLIGRAM, QD
     Route: 048

REACTIONS (3)
  - Immune thrombocytopenia [Recovering/Resolving]
  - Haematochezia [Unknown]
  - Aplastic anaemia [Recovering/Resolving]

NARRATIVE: CASE EVENT DATE: 20230701
